FAERS Safety Report 6390641-7 (Version None)
Quarter: 2009Q4

REPORT INFORMATION
  Report Type: 
  Country: None (occurrence: None)
  Receive Date: 20091006
  Receipt Date: 20091001
  Transmission Date: 20100525
  Serious: Yes (Hospitalization)
  Sender: FDA-Public Use
  Company Number: GB-WYE-G04547409

PATIENT
  Age: 61 Year
  Sex: Male

DRUGS (4)
  1. ANADIN IBUPROFEN [Suspect]
     Route: 048
     Dates: end: 20090903
  2. PROPRANOLOL [Concomitant]
     Indication: HYPERTENSION
     Route: 048
     Dates: end: 20090903
  3. QUININE BISULFATE [Concomitant]
     Indication: MUSCLE SPASMS
  4. CO-CODAMOL [Concomitant]
     Indication: BACK PAIN
     Dosage: TWO DOSAGE FORMS AS NECESSARY
     Route: 048

REACTIONS (5)
  - ALCOHOLIC LIVER DISEASE [None]
  - DUODENAL ULCER [None]
  - HAEMATEMESIS [None]
  - MELAENA [None]
  - VARICES OESOPHAGEAL [None]
